FAERS Safety Report 4997497-5 (Version None)
Quarter: 2006Q2

REPORT INFORMATION
  Report Type: 
  Country: None (occurrence: None)
  Receive Date: 20060509
  Receipt Date: 20060207
  Transmission Date: 20061013
  Serious: Yes (Hospitalization, Other)
  Sender: FDA-Public Use
  Company Number: US-MERCK-0602USA02363

PATIENT
  Age: 72 Year
  Sex: Female
  Weight: 75 kg

DRUGS (14)
  1. VIOXX [Suspect]
     Indication: ARTHRITIS
     Route: 048
     Dates: start: 19991027, end: 20040929
  2. VIOXX [Suspect]
     Route: 048
     Dates: start: 19991027, end: 20040929
  3. VIOXX [Suspect]
     Route: 048
     Dates: start: 19991027, end: 20040929
  4. [THERAPY UNSPECIFIED] [Concomitant]
     Route: 065
     Dates: start: 19950101
  5. [THERAPY UNSPECIFIED] [Concomitant]
     Indication: BLOOD CHOLESTEROL
     Route: 065
     Dates: start: 19970101
  6. PAXIL [Concomitant]
     Route: 065
     Dates: start: 19950101, end: 20030101
  7. PRILOSEC [Concomitant]
     Route: 048
  8. NEURONTIN [Concomitant]
     Route: 065
  9. DETROL [Concomitant]
     Route: 065
  10. TEMAZEPAM [Concomitant]
     Indication: INSOMNIA
     Route: 065
  11. ALPRAZOLAM [Concomitant]
     Route: 065
  12. LIPITOR [Concomitant]
     Indication: BLOOD CHOLESTEROL INCREASED
     Route: 065
     Dates: start: 19990101
  13. LORCET-HD [Concomitant]
     Indication: ARTHRALGIA
     Route: 065
     Dates: start: 19970101, end: 20040101
  14. NORVASC [Concomitant]
     Indication: CHEST PAIN
     Route: 065

REACTIONS (11)
  - ACUTE MYOCARDIAL INFARCTION [None]
  - ARTERIOSCLEROSIS CORONARY ARTERY [None]
  - CARDIOVASCULAR DECONDITIONING [None]
  - CHEST PAIN [None]
  - CORONARY ARTERY DISEASE [None]
  - DIABETES MELLITUS NON-INSULIN-DEPENDENT [None]
  - DYSLIPIDAEMIA [None]
  - DYSPNOEA [None]
  - EFFUSION [None]
  - HYPERTENSION [None]
  - HYPOKALAEMIA [None]
